FAERS Safety Report 5747771-X (Version None)
Quarter: 2008Q2

REPORT INFORMATION
  Report Type: 
  Country: None (occurrence: None)
  Receive Date: 20080523
  Receipt Date: 20080516
  Transmission Date: 20081010
  Serious: Yes (Hospitalization)
  Sender: FDA-Public Use
  Company Number: US-MERCK-0705USA02789

PATIENT
  Age: 62 Year
  Sex: Female

DRUGS (2)
  1. FOSAMAX [Suspect]
     Indication: OSTEOPOROSIS
     Route: 048
     Dates: start: 20040501, end: 20050501
  2. FOSAMAX [Suspect]
     Route: 048
     Dates: start: 20030101, end: 20041101

REACTIONS (12)
  - APPENDIX DISORDER [None]
  - ARTHROPATHY [None]
  - DECUBITUS ULCER [None]
  - DRUG DETOXIFICATION [None]
  - GALLBLADDER DISORDER [None]
  - HIP FRACTURE [None]
  - HYPOAESTHESIA [None]
  - INFECTION [None]
  - JAW DISORDER [None]
  - PAIN [None]
  - TEMPOROMANDIBULAR JOINT SYNDROME [None]
  - TOOTH LOSS [None]
